FAERS Safety Report 13053851 (Version 2)
Quarter: 2017Q1

REPORT INFORMATION
  Report Type: Spontaneous
  Country: US (occurrence: US)
  Receive Date: 20161222
  Receipt Date: 20170223
  Transmission Date: 20170428
  Serious: No
  Sender: FDA-Public Use
  Company Number: US-009507513-1612USA005666

PATIENT
  Age: 23 Year
  Sex: Female
  Weight: 53.06 kg

DRUGS (1)
  1. NEXPLANON [Suspect]
     Active Substance: ETONOGESTREL
     Dosage: 1 IMPLANT, UNK
     Route: 059
     Dates: start: 20160811

REACTIONS (1)
  - Breast discharge [Unknown]

NARRATIVE: CASE EVENT DATE: 20161207
